FAERS Safety Report 24836902 (Version 1)
Quarter: 2025Q1

REPORT INFORMATION
  Report Type: Report from Study
  Country: US (occurrence: US)
  Receive Date: 20250113
  Receipt Date: 20250113
  Transmission Date: 20250409
  Serious: Yes (Death, Other)
  Sender: TAKEDA
  Company Number: US-TAKEDA-2024TUS076307

PATIENT
  Age: 41 Year
  Sex: Male

DRUGS (3)
  1. FRUQUINTINIB [Suspect]
     Active Substance: FRUQUINTINIB
     Indication: Rectal cancer
  2. FRUQUINTINIB [Suspect]
     Active Substance: FRUQUINTINIB
     Indication: Malignant peritoneal neoplasm
  3. FRUQUINTINIB [Suspect]
     Active Substance: FRUQUINTINIB
     Indication: Retroperitoneal cancer

REACTIONS (7)
  - Death [Fatal]
  - Product dose omission issue [Not Recovered/Not Resolved]
  - Ear discomfort [Not Recovered/Not Resolved]
  - Aphonia [Unknown]
  - Blood pressure increased [Unknown]
  - Dysphonia [Unknown]
  - Rash [Unknown]

NARRATIVE: CASE EVENT DATE: 20241205
